FAERS Safety Report 5275244-X (Version None)
Quarter: 2007Q1

REPORT INFORMATION
  Report Type: 
  Country: None (occurrence: None)
  Receive Date: 20070326
  Receipt Date: 20070319
  Transmission Date: 20070707
  Serious: Yes (Hospitalization, Other)
  Sender: FDA-Public Use
  Company Number: DE-BAYER-200710268BVD

PATIENT
  Age: 51 Year
  Sex: Female
  Weight: 70 kg

DRUGS (1)
  1. MOXIFLOXACIN HCL [Suspect]
     Indication: INFECTION
     Route: 065
     Dates: start: 20070226, end: 20070227

REACTIONS (5)
  - CARDIOVASCULAR DISORDER [None]
  - CYANOSIS [None]
  - DYSPNOEA [None]
  - HYPOGLYCAEMIA [None]
  - STRIDOR [None]
